FAERS Safety Report 25926635 (Version 1)
Quarter: 2025Q4

REPORT INFORMATION
  Report Type: Spontaneous
  Country: US (occurrence: US)
  Receive Date: 20251015
  Receipt Date: 20251015
  Transmission Date: 20260117
  Serious: Yes (Other)
  Sender: PFIZER
  Company Number: US-PFIZER INC-PV202400125343

PATIENT
  Age: 68 Year
  Sex: Female
  Weight: 70.6 kg

DRUGS (4)
  1. IBRANCE [Suspect]
     Active Substance: PALBOCICLIB
     Indication: Breast cancer female
     Dosage: 125 MG, CYCLIC (TAKE FOR 21 DAYS ON, THEN 7 OFF) TAKE WITH OR WITHOUT
     Route: 048
  2. XALATAN [Concomitant]
     Active Substance: LATANOPROST
     Dosage: USE 1 DROP IN BOTH EYES DAILY AT BEDTIME
     Route: 047
  3. ANASTROZOLE [Concomitant]
     Active Substance: ANASTROZOLE
     Dosage: UNK
     Dates: end: 202401
  4. FULVESTRANT [Concomitant]
     Active Substance: FULVESTRANT
     Dosage: UNK

REACTIONS (2)
  - Breast cancer female [Unknown]
  - Malignant neoplasm progression [Unknown]
